FAERS Safety Report 15168574 (Version 1)
Quarter: 2018Q3

REPORT INFORMATION
  Report Type: Spontaneous
  Country: IT (occurrence: IT)
  Receive Date: 20180719
  Receipt Date: 20180719
  Transmission Date: 20181010
  Serious: Yes (Other)
  Sender: FDA-Public Use
  Company Number: IT-009507513-2011SP038498

PATIENT
  Age: 6 Year
  Sex: Male

DRUGS (2)
  1. TEMOZOLOMIDE. [Suspect]
     Active Substance: TEMOZOLOMIDE
     Indication: GANGLIOGLIOMA
     Dosage: UNK
     Route: 048
  2. IMATINIB MESYLATE. [Suspect]
     Active Substance: IMATINIB MESYLATE
     Indication: GANGLIOGLIOMA
     Dosage: UNK

REACTIONS (1)
  - Cardiotoxicity [Recovered/Resolved]
